FAERS Safety Report 21066375 (Version 2)
Quarter: 2022Q3

REPORT INFORMATION
  Report Type: Report from Study
  Country: US (occurrence: US)
  Receive Date: 20220711
  Receipt Date: 20220712
  Transmission Date: 20221027
  Serious: Yes (Death)
  Sender: FDA-Public Use
  Company Number: US-RIGEL PHARMACEUTICALS, INC.-2022R93000002

PATIENT
  Age: 71 Year
  Sex: Female
  Weight: 56.4 kg

DRUGS (12)
  1. FOSTAMATINIB DISODIUM [Suspect]
     Active Substance: FOSTAMATINIB DISODIUM
     Indication: Ovarian cancer
     Dosage: 200 MG, BID
     Dates: start: 20220616, end: 20220701
  2. PACLITAXEL [Suspect]
     Active Substance: PACLITAXEL
     Indication: Ovarian cancer
     Dosage: UNK
     Dates: start: 2022
  3. ACETAMINOPHEN AND CODEINE [Concomitant]
     Active Substance: ACETAMINOPHEN\CODEINE PHOSPHATE
     Indication: Pain
     Dosage: 30 MG, PRN
     Route: 048
     Dates: start: 20220613
  4. XANAX [Concomitant]
     Active Substance: ALPRAZOLAM
     Indication: Anxiety
     Dosage: 0.25 MG, PRN
     Route: 048
     Dates: start: 20210723
  5. ONDANSETRON [Concomitant]
     Active Substance: ONDANSETRON
     Indication: Nausea
     Dosage: 8 MG, PRN
     Route: 048
     Dates: start: 20210723
  6. TRAMADOL [Concomitant]
     Active Substance: TRAMADOL
     Indication: Pain
     Dosage: 50 MG, PRN
     Route: 048
     Dates: start: 20220427
  7. DOCUSATE SODIUM [Concomitant]
     Active Substance: DOCUSATE SODIUM
     Indication: Constipation
     Dosage: 100 MG, PRN
     Route: 048
     Dates: start: 20200227
  8. CALCIUM CARBONATE\VITAMIN D [Concomitant]
     Active Substance: CALCIUM CARBONATE\VITAMIN D
     Indication: Supplementation therapy
     Dosage: 650 MG, BID
     Route: 048
     Dates: start: 20181212
  9. CARVEDILOL [Concomitant]
     Active Substance: CARVEDILOL
     Indication: Hypertension
     Dosage: 6.25 MG, BID
     Route: 048
     Dates: start: 20170215
  10. EZETIMIBE [Concomitant]
     Active Substance: EZETIMIBE
     Indication: Blood cholesterol increased
     Dosage: 10 MG, QD
     Route: 048
     Dates: start: 20190103
  11. OMEPRAZOLE [Concomitant]
     Active Substance: OMEPRAZOLE
     Indication: Gastrooesophageal reflux disease
     Dosage: 40 MG, QD
     Route: 048
     Dates: start: 20220413
  12. PRAVASTATIN [Concomitant]
     Active Substance: PRAVASTATIN
     Indication: Blood cholesterol increased
     Dosage: 10 MG, QD
     Route: 048
     Dates: start: 20181212

REACTIONS (1)
  - Necrotising soft tissue infection [Fatal]

NARRATIVE: CASE EVENT DATE: 20220101
